FAERS Safety Report 17854792 (Version 1)
Quarter: 2020Q2

REPORT INFORMATION
  Report Type: Spontaneous
  Country: US (occurrence: US)
  Receive Date: 20200602
  Receipt Date: 20200602
  Transmission Date: 20200714
  Serious: No
  Sender: FDA-Public Use
  Company Number: None

PATIENT
  Age: 73 Year
  Sex: Male
  Weight: 78.3 kg

DRUGS (2)
  1. REMICADE [Suspect]
     Active Substance: INFLIXIMAB
     Indication: PSORIASIS
     Dosage: ?          OTHER FREQUENCY:WEEK 0, 2 AND 6;?
     Route: 041
     Dates: start: 20200602, end: 20200602
  2. REMICADE [Concomitant]
     Active Substance: INFLIXIMAB
     Dates: start: 20200421, end: 20200602

REACTIONS (5)
  - Flushing [None]
  - Pruritus [None]
  - Oxygen saturation decreased [None]
  - Blood pressure decreased [None]
  - Dizziness [None]

NARRATIVE: CASE EVENT DATE: 20200602
